FAERS Safety Report 9328294 (Version 1)
Quarter: 2013Q2

REPORT INFORMATION
  Report Type: Spontaneous
  Country: US (occurrence: US)
  Receive Date: 20130604
  Receipt Date: 20130604
  Transmission Date: 20140414
  Serious: No
  Sender: FDA-Public Use
  Company Number: US-SANOFI-AVENTIS-2012SA047049

PATIENT
  Age: 77 Year
  Sex: Male

DRUGS (4)
  1. LANTUS [Suspect]
     Indication: TYPE 2 DIABETES MELLITUS
     Dosage: DOSE:24 UNIT(S)
     Route: 058
     Dates: start: 2011
  2. SOLOSTAR [Suspect]
     Indication: DEVICE THERAPY
     Dates: start: 2011
  3. VICTOZA [Suspect]
     Dosage: 1.8 DAILY
     Route: 065
  4. METFORMIN [Concomitant]
     Route: 065

REACTIONS (6)
  - Sleep disorder [Unknown]
  - Blood pressure increased [Unknown]
  - Food craving [Not Recovered/Not Resolved]
  - Weight decreased [Unknown]
  - Blood glucose increased [Recovered/Resolved]
  - Glycosylated haemoglobin increased [Unknown]
